FAERS Safety Report 16390560 (Version 2)
Quarter: 2019Q3

REPORT INFORMATION
  Report Type: Spontaneous
  Country: JP (occurrence: JP)
  Receive Date: 20190604
  Receipt Date: 20190711
  Transmission Date: 20191004
  Serious: No
  Sender: FDA-Public Use
  Company Number: JP-SA-2019SA150008

PATIENT
  Age: 50 Year
  Sex: Male

DRUGS (2)
  1. FLIVAS [Concomitant]
     Active Substance: NAFTOPIDIL
     Dosage: UNK
     Route: 048
  2. HARNAL [Suspect]
     Active Substance: TAMSULOSIN HYDROCHLORIDE
     Indication: PRODUCT USED FOR UNKNOWN INDICATION
     Dosage: 0.2 MG, QD
     Route: 048

REACTIONS (1)
  - No adverse event [Unknown]
